FAERS Safety Report 9772313 (Version 3)
Quarter: 2014Q1

REPORT INFORMATION
  Report Type: Spontaneous
  Country: JP (occurrence: JP)
  Receive Date: 20131219
  Receipt Date: 20140127
  Transmission Date: 20141002
  Serious: Yes (Death, Life-Threatening, Hospitalization, Other)
  Sender: FDA-Public Use
  Company Number: JP-BAYER-2013-152031

PATIENT
  Age: 42 Year
  Sex: Female
  Weight: 54 kg

DRUGS (4)
  1. YAZ [Suspect]
     Indication: DYSMENORRHOEA
     Dosage: 1 DF, QD
     Route: 048
     Dates: start: 20121206, end: 20131209
  2. VOLTAREN - SLOW RELEASE [Concomitant]
     Dosage: 37.5 MG, BID
     Route: 048
     Dates: start: 20121129
  3. SELBEX [Concomitant]
     Indication: PROPHYLAXIS
     Dosage: 50 MG, BID
     Route: 048
     Dates: start: 20130411, end: 20130710
  4. VESICARE [Concomitant]
     Indication: POLLAKIURIA
     Dosage: 5 MG, QD
     Route: 048
     Dates: start: 20130701, end: 20131005

REACTIONS (21)
  - Muscle spasms [None]
  - Cardio-respiratory arrest [None]
  - Pulmonary embolism [Fatal]
  - Dyspnoea [Fatal]
  - Tachypnoea [Fatal]
  - Deep vein thrombosis [None]
  - Local swelling [None]
  - Pain in extremity [None]
  - Encephalopathy [None]
  - Loss of consciousness [None]
  - Mydriasis [None]
  - Blood pressure increased [None]
  - Intracranial pressure increased [None]
  - Haemorrhage [None]
  - Renal failure [None]
  - Urine output decreased [None]
  - Pleural effusion [None]
  - Cardio-respiratory arrest [Fatal]
  - Brain death [Fatal]
  - Shock [None]
  - Cerebral ischaemia [None]
